FAERS Safety Report 20048869 (Version 1)
Quarter: 2021Q4

REPORT INFORMATION
  Report Type: Spontaneous
  Country: SE (occurrence: SE)
  Receive Date: 20211109
  Receipt Date: 20211109
  Transmission Date: 20220303
  Serious: Yes (Disabling)
  Sender: FDA-Public Use
  Company Number: None

PATIENT
  Age: 30 Year
  Sex: Female
  Weight: 115 kg

DRUGS (2)
  1. ESCITALOPRAM OXALATE [Suspect]
     Active Substance: ESCITALOPRAM OXALATE
     Indication: Mixed anxiety and depressive disorder
     Dosage: STRENGTH: 10 MG, FILM-COATED TABLET
     Route: 048
     Dates: start: 20180409
  2. BLUEFISH [Suspect]
     Active Substance: BLUEFISH
     Indication: Mixed anxiety and depressive disorder
     Dosage: STRENGTH: 10 MG
     Route: 048
     Dates: start: 20180409

REACTIONS (7)
  - Withdrawal syndrome [Not Recovered/Not Resolved]
  - Paranoia [Not Recovered/Not Resolved]
  - Apathy [Not Recovered/Not Resolved]
  - Panic reaction [Not Recovered/Not Resolved]
  - Anxiety [Not Recovered/Not Resolved]
  - Depression [Not Recovered/Not Resolved]
  - Fatigue [Not Recovered/Not Resolved]

NARRATIVE: CASE EVENT DATE: 20190918
